FAERS Safety Report 9359545 (Version 1)
Quarter: 2013Q2

REPORT INFORMATION
  Report Type: Report from Study
  Country: TW (occurrence: TW)
  Receive Date: 20130620
  Receipt Date: 20130620
  Transmission Date: 20140414
  Serious: No
  Sender: FDA-Public Use
  Company Number: PHHY2013TW061667

PATIENT
  Age: 48 Year
  Sex: Female

DRUGS (32)
  1. AMN107 [Suspect]
     Dosage: 600 MG
     Dates: start: 20101229, end: 20120415
  2. AMN107 [Suspect]
     Dosage: 800 MG
     Dates: start: 20120416
  3. ACARBOSE [Concomitant]
     Indication: DIABETES MELLITUS
     Dosage: UNK
     Dates: start: 20110309, end: 20110405
  4. ACETAMINOPHEN [Concomitant]
     Indication: PAIN IN EXTREMITY
     Dosage: UNK
     Dates: start: 20110518, end: 20110614
  5. ALPRAZOLAM [Concomitant]
     Indication: INSOMNIA
     Dosage: UNK
     Dates: end: 20110928
  6. AMLODIPINE BESYLATE [Concomitant]
     Indication: HYPERTENSION
  7. ASPIRIN [Concomitant]
     Indication: CEREBRAL ISCHAEMIA
     Dosage: UNK
     Dates: start: 20120906
  8. BETAHISTINE//BETAHISTINE MESILATE [Concomitant]
     Indication: VERTIGO
     Dosage: UNK
     Dates: start: 20120907, end: 20120907
  9. BISOPROLOL [Concomitant]
     Indication: HYPERTENSION
  10. CEPHRADINE [Concomitant]
     Indication: VAGINAL INFECTION
     Dosage: UNK
     Dates: start: 20110208, end: 20110214
  11. CO-DIOVAN [Concomitant]
     Indication: HYPERTENSION
  12. DIAZEPAM [Concomitant]
     Indication: VERTIGO
     Dosage: UNK
     Dates: start: 20120906, end: 20120906
  13. DIAZEPAM [Concomitant]
     Dosage: UNK
     Dates: start: 20120908, end: 20120908
  14. DIAZEPAM [Concomitant]
     Dosage: UNK
     Dates: start: 20120910, end: 20120911
  15. DIPHENIDOL [Concomitant]
     Indication: VERTIGO
     Dosage: UNK
     Dates: start: 20120906, end: 20120919
  16. ESTAZOLAM [Concomitant]
     Indication: INSOMNIA
     Dosage: UNK
     Dates: start: 20120920, end: 20121017
  17. EXFORGE [Concomitant]
     Indication: HYPERTENSION
     Dates: start: 20120920
  18. GADODIAMIDE [Concomitant]
     Indication: NUCLEAR MAGNETIC RESONANCE IMAGING
     Dosage: UNK
     Dates: start: 20120906, end: 20120906
  19. GLIMEPIRIDE [Concomitant]
     Indication: DIABETES MELLITUS
     Dosage: UNK
     Dates: start: 20110309, end: 20110706
  20. GLUCOMET [Concomitant]
     Indication: DIABETES MELLITUS
     Dosage: UNK
     Dates: end: 20110308
  21. GLUCOMET [Concomitant]
     Dosage: UNK
     Dates: start: 20120920
  22. MAGNESIUM OXIDE [Concomitant]
     Indication: GASTRIC DISORDER
     Dates: start: 20110208, end: 20110214
  23. MECLIZINE [Concomitant]
     Indication: VERTIGO
     Dosage: UNK
     Dates: start: 20120910, end: 20120919
  24. METFORMIN [Concomitant]
     Indication: DIABETES MELLITUS
     Dosage: UNK
     Dates: start: 20110309, end: 20120731
  25. MYCOMB CREAM [Concomitant]
     Indication: VAGINAL INFECTION
     Dosage: UNK
     Dates: start: 20110208, end: 20110220
  26. NYSTATINE [Concomitant]
     Indication: VAGINAL INFECTION
     Dosage: UNK
     Dates: start: 20110208, end: 20110220
  27. PIOGLITAZONE [Concomitant]
     Indication: DIABETES MELLITUS
     Dosage: UNK
     Dates: start: 20120804, end: 20120919
  28. POTASSIUM CHLORIDE [Concomitant]
     Indication: HYPOKALAEMIA
     Dosage: UNK
     Dates: start: 20120906, end: 20120908
  29. PROCHLORPERAZINE [Concomitant]
     Indication: VOMITING
     Dosage: UNK
     Dates: start: 20120907, end: 20120908
  30. REGULAR INSULIN [Concomitant]
     Indication: DIABETES MELLITUS
     Dosage: UNK
     Dates: start: 20120907, end: 20120907
  31. ROSIGLITAZONE MALEATE [Concomitant]
     Indication: DIABETES MELLITUS
     Dosage: UNK
     Dates: start: 20101110, end: 20110707
  32. ZOPIDEM [Concomitant]
     Indication: INSOMNIA
     Dosage: UNK
     Dates: start: 20121018

REACTIONS (2)
  - Dizziness [Unknown]
  - Hyperlipidaemia [Unknown]
